FAERS Safety Report 11734314 (Version 1)
Quarter: 2015Q4

REPORT INFORMATION
  Report Type: Spontaneous
  Country: US (occurrence: None)
  Receive Date: 20151112
  Receipt Date: 20151112
  Transmission Date: 20160304
  Serious: No
  Sender: FDA-Public Use
  Company Number: None

PATIENT
  Age: 62 Year
  Sex: Male
  Weight: 70.31 kg

DRUGS (2)
  1. CARE FUSION SMART IV PUMP [Concomitant]
  2. PROPOFOL. [Suspect]
     Active Substance: PROPOFOL

REACTIONS (2)
  - Incorrect drug administration rate [None]
  - Device malfunction [None]

NARRATIVE: CASE EVENT DATE: 20151029
